FAERS Safety Report 10831239 (Version 1)
Quarter: 2015Q1

REPORT INFORMATION
  Report Type: Report from Study
  Country: US (occurrence: US)
  Receive Date: 20150219
  Receipt Date: 20150219
  Transmission Date: 20150721
  Serious: Yes (Hospitalization)
  Sender: FDA-Public Use
  Company Number: US-ABBVIE-14P-163-1192491-00

PATIENT
  Age: 58 Year
  Sex: Male
  Weight: 68.1 kg

DRUGS (4)
  1. HUMIRA [Suspect]
     Active Substance: ADALIMUMAB
     Indication: PSORIASIS
     Dosage: LOADING
     Route: 058
     Dates: start: 20130611
  2. UNKNOWN ACID REFLUX MEDICATION [Concomitant]
     Indication: GASTROOESOPHAGEAL REFLUX DISEASE
  3. HUMIRA [Suspect]
     Active Substance: ADALIMUMAB
     Indication: PSORIASIS
     Route: 058
  4. PROZAC [Concomitant]
     Active Substance: FLUOXETINE HYDROCHLORIDE
     Indication: DEPRESSION

REACTIONS (15)
  - Fatigue [Not Recovered/Not Resolved]
  - Pain in extremity [Recovering/Resolving]
  - Fatigue [Recovering/Resolving]
  - Joint swelling [Recovered/Resolved]
  - Dyspnoea [Not Recovered/Not Resolved]
  - Tinnitus [Not Recovered/Not Resolved]
  - Unevaluable event [Not Recovered/Not Resolved]
  - Cellulitis [Recovered/Resolved]
  - Local swelling [Recovering/Resolving]
  - Feeling hot [Recovering/Resolving]
  - Erythema [Recovering/Resolving]
  - Migraine [Not Recovered/Not Resolved]
  - Peripheral swelling [Recovered/Resolved]
  - Skin lesion [Unknown]
  - Psychomotor skills impaired [Unknown]

NARRATIVE: CASE EVENT DATE: 2013
